FAERS Safety Report 21048787 (Version 1)
Quarter: 2022Q3

REPORT INFORMATION
  Report Type: Spontaneous
  Country: ES (occurrence: ES)
  Receive Date: 20220706
  Receipt Date: 20220706
  Transmission Date: 20221027
  Serious: Yes (Hospitalization)
  Sender: FDA-Public Use
  Company Number: ES-ANIPHARMA-2022-ES-000091

PATIENT
  Age: 86 Year
  Sex: Male

DRUGS (7)
  1. CANDESARTAN CILEXETIL [Suspect]
     Active Substance: CANDESARTAN CILEXETIL
     Indication: Hypertension
     Dosage: DOSE TEXT: 8.0 MG C/24 H
     Route: 048
     Dates: start: 20210126, end: 20210314
  2. FERROUS SULFATE [Concomitant]
     Active Substance: FERROUS SULFATE
     Dosage: 105.0 MG C/24 H AM
     Route: 048
     Dates: start: 20160116
  3. SINTROM [Concomitant]
     Active Substance: ACENOCOUMAROL
     Dosage: 3.0 MG C/24 H
     Route: 048
     Dates: start: 20120217
  4. LORAZEPAM [Concomitant]
     Active Substance: LORAZEPAM
     Dosage: 1.0 MG C/12 H
     Route: 048
     Dates: start: 20171117
  5. PARACETAMOL CINFA [Concomitant]
     Dosage: 650.0 MG
     Route: 048
     Dates: start: 20191125
  6. OMEPRAZOL NORMON [Concomitant]
     Dosage: 40.0 MG A-DE
     Route: 048
     Dates: start: 20170301
  7. METHYLPREDNISOLONE [Concomitant]
     Active Substance: METHYLPREDNISOLONE
     Dosage: 4.0 MG DE
     Route: 048
     Dates: start: 20110624

REACTIONS (1)
  - Syncope [Recovered/Resolved]

NARRATIVE: CASE EVENT DATE: 20210314
